FAERS Safety Report 7084325-X (Version None)
Quarter: 2010Q4

REPORT INFORMATION
  Report Type: 
  Country: None (occurrence: None)
  Receive Date: 20101104
  Receipt Date: 20101028
  Transmission Date: 20110411
  Serious: Yes (Disabling, Other)
  Sender: FDA-Public Use
  Company Number: US-PFIZER INC-2010127071

PATIENT
  Sex: Female
  Weight: 68 kg

DRUGS (6)
  1. LIPITOR [Suspect]
     Indication: BLOOD CHOLESTEROL INCREASED
     Dosage: UNK
  2. LIPITOR [Suspect]
     Dosage: 40 MG, DAILY
     Route: 048
     Dates: end: 20100821
  3. LISINOPRIL [Concomitant]
     Dosage: 10 MG, UNK
  4. TRIAMTERENE HYDROCHLORIDE [Concomitant]
     Dosage: 75/50 MG, UNK
  5. BUSPIRONE [Concomitant]
     Dosage: 15 MG, UNK
  6. FEMARA [Concomitant]
     Indication: BREAST CANCER
     Dosage: UNK

REACTIONS (5)
  - ARTHRALGIA [None]
  - DYSKINESIA [None]
  - MUSCLE SPASMS [None]
  - MUSCULAR WEAKNESS [None]
  - PAIN IN EXTREMITY [None]
